FAERS Safety Report 14579894 (Version 2)
Quarter: 2018Q1

REPORT INFORMATION
  Report Type: Spontaneous
  Country: DE (occurrence: DE)
  Receive Date: 20180228
  Receipt Date: 20180308
  Transmission Date: 20180509
  Serious: Yes (Other)
  Sender: FDA-Public Use
  Company Number: DE-AMGEN-DEUSP2018024413

PATIENT
  Age: 52 Year
  Sex: Female
  Weight: 53 kg

DRUGS (1)
  1. PROLIA [Suspect]
     Active Substance: DENOSUMAB
     Indication: OSTEOPOROSIS
     Dosage: 60 MG, UNK
     Route: 042

REACTIONS (4)
  - Paraesthesia [Unknown]
  - Polyneuropathy [Unknown]
  - Peripheral coldness [Unknown]
  - Tinnitus [Unknown]

NARRATIVE: CASE EVENT DATE: 20171215
